FAERS Safety Report 15419599 (Version 1)
Quarter: 2018Q3

REPORT INFORMATION
  Report Type: Spontaneous
  Country: JP (occurrence: JP)
  Receive Date: 20180924
  Receipt Date: 20180924
  Transmission Date: 20181010
  Serious: Yes (Other)
  Sender: FDA-Public Use
  Company Number: JP-ELI_LILLY_AND_COMPANY-JP201809009865

PATIENT
  Age: 64 Year
  Sex: Female
  Weight: 48 kg

DRUGS (4)
  1. FLUOROURACIL. [Suspect]
     Active Substance: FLUOROURACIL
     Indication: COLON CANCER METASTATIC
     Dosage: UNK UNK, UNKNOWN
     Route: 065
  2. OXALIPLATIN. [Suspect]
     Active Substance: OXALIPLATIN
     Indication: COLON CANCER METASTATIC
     Dosage: UNK UNK, UNKNOWN
     Route: 065
  3. ERBITUX [Suspect]
     Active Substance: CETUXIMAB
     Indication: COLON CANCER METASTATIC
     Dosage: UNK UNK, UNKNOWN
     Route: 041
  4. FOLINATE CALCIUM [Suspect]
     Active Substance: LEUCOVORIN CALCIUM
     Indication: COLON CANCER METASTATIC
     Dosage: UNK UNK, UNKNOWN
     Route: 065

REACTIONS (1)
  - Foreign body reaction [Recovered/Resolved]
